FAERS Safety Report 10435589 (Version 1)
Quarter: 2014Q3

REPORT INFORMATION
  Report Type: Spontaneous
  Country: FR (occurrence: FR)
  Receive Date: 20140908
  Receipt Date: 20140908
  Transmission Date: 20150326
  Serious: Yes (Life-Threatening, Hospitalization)
  Sender: FDA-Public Use
  Company Number: FR-BRISTOL-MYERS SQUIBB COMPANY-21367529

PATIENT
  Age: 63 Year
  Sex: Female

DRUGS (9)
  1. LERCAN [Suspect]
     Active Substance: LERCANIDIPINE
     Indication: HYPERTENSION
     Dosage: 20 MG FILM-COATED TAB
     Route: 048
  2. ALTEIS [Suspect]
     Active Substance: OLMESARTAN MEDOXOMIL
     Indication: HYPERTENSION
     Dosage: 40 MG FILM-COATED TABLET
     Route: 048
     Dates: end: 20140523
  3. ALDACTONE [Suspect]
     Active Substance: SPIRONOLACTONE
     Indication: HYPERTENSION
     Dosage: 25 MG SCORED TABLET
     Route: 048
     Dates: end: 20140523
  4. HYPERIUM [Suspect]
     Active Substance: RILMENIDINE PHOSPHATE
     Indication: HYPERTENSION
     Dosage: TOTAL DAILY DOSE:2DF?1MG TAB
     Route: 048
     Dates: end: 20140523
  5. VENTOLIN [Concomitant]
     Active Substance: ALBUTEROL SULFATE
     Indication: ASTHMA
  6. ONBREZ [Concomitant]
     Active Substance: INDACATEROL
     Indication: ASTHMA
  7. ALLOPURINOL. [Concomitant]
     Active Substance: ALLOPURINOL
  8. GLUCOPHAGE [Suspect]
     Active Substance: METFORMIN HYDROCHLORIDE
     Indication: TYPE 2 DIABETES MELLITUS
     Dosage: TOTAL DAILY DOSE: 2DF?FILM-COATED TABLET
     Route: 048
     Dates: end: 20140523
  9. LASILIX [Suspect]
     Active Substance: FUROSEMIDE
     Indication: HYPERTENSION
     Dosage: 40MG SCORED TABLET
     Route: 048

REACTIONS (3)
  - Hyperkalaemia [Recovered/Resolved]
  - Renal impairment [Recovering/Resolving]
  - Metabolic acidosis [Recovered/Resolved]

NARRATIVE: CASE EVENT DATE: 20140521
